FAERS Safety Report 7133549-1 (Version None)
Quarter: 2010Q4

REPORT INFORMATION
  Report Type: 
  Country: None (occurrence: None)
  Receive Date: 20101202
  Receipt Date: 20100715
  Transmission Date: 20110411
  Serious: Yes (Other)
  Sender: FDA-Public Use
  Company Number: US-CELGENEUS-163-20785-10060342

PATIENT

DRUGS (2)
  1. THALOMID [Suspect]
     Indication: LEPROMATOUS LEPROSY
     Route: 048
     Dates: start: 20071201
  2. THALOMID [Suspect]
     Dosage: 200MG-100MG
     Route: 048
     Dates: start: 20070301

REACTIONS (1)
  - PREGNANCY OF PARTNER [None]
